FAERS Safety Report 4861914-1 (Version None)
Quarter: 2005Q4

REPORT INFORMATION
  Report Type: 
  Country: None (occurrence: None)
  Receive Date: 20051130
  Receipt Date: 20050929
  Transmission Date: 20060501
  Serious: No
  Sender: FDA-Public Use
  Company Number: MPS1-10441

PATIENT
  Age: 18 Year
  Sex: Female
  Weight: 98.8842 kg

DRUGS (3)
  1. ALDURAZYME [Suspect]
     Indication: MUCOPOLYSACCHARIDOSIS I
     Dosage: 55.1 MG QWK IV
     Route: 042
     Dates: start: 20050902
  2. BENADRYL [Concomitant]
  3. ACETAMINOPHEN [Concomitant]

REACTIONS (1)
  - EAR PAIN [None]
